FAERS Safety Report 12042026 (Version 2)
Quarter: 2016Q1

REPORT INFORMATION
  Report Type: Spontaneous
  Country: US (occurrence: US)
  Receive Date: 20160208
  Receipt Date: 20160219
  Transmission Date: 20160526
  Serious: Yes (Hospitalization, Other)
  Sender: FDA-Public Use
  Company Number: US-BEH-2016058352

PATIENT
  Sex: Female
  Weight: 123 kg

DRUGS (22)
  1. ALBUTEROL. [Concomitant]
     Active Substance: ALBUTEROL
  2. SPIRIVA [Concomitant]
     Active Substance: TIOTROPIUM BROMIDE MONOHYDRATE
  3. NEURONTIN [Concomitant]
     Active Substance: GABAPENTIN
  4. EPINEPHRINE. [Concomitant]
     Active Substance: EPINEPHRINE
  5. LISINOPRIL. [Concomitant]
     Active Substance: LISINOPRIL
  6. PROTONIX [Concomitant]
     Active Substance: PANTOPRAZOLE SODIUM
  7. FLEXERIL [Concomitant]
     Active Substance: CYCLOBENZAPRINE HYDROCHLORIDE
  8. FLAXSEED [Concomitant]
     Active Substance: FLAX SEED
  9. CLARINEX [Concomitant]
     Active Substance: DESLORATADINE
  10. METFORMIN [Concomitant]
     Active Substance: METFORMIN HYDROCHLORIDE
  11. LIDOCAINE/PRILOCAINE [Concomitant]
  12. ZYRTEC [Concomitant]
     Active Substance: CETIRIZINE HYDROCHLORIDE
  13. WELLBUTRIN [Concomitant]
     Active Substance: BUPROPION HYDROCHLORIDE
  14. PROVERA [Concomitant]
     Active Substance: MEDROXYPROGESTERONE ACETATE
  15. MELOXICAM. [Concomitant]
     Active Substance: MELOXICAM
  16. HIZENTRA [Suspect]
     Active Substance: HUMAN IMMUNOGLOBULIN G
     Indication: IMMUNODEFICIENCY COMMON VARIABLE
     Route: 058
  17. DIPHENHYDRAMINE. [Concomitant]
     Active Substance: DIPHENHYDRAMINE
  18. OXYCODONE [Concomitant]
     Active Substance: OXYCODONE
  19. SPIRONOLACTONE. [Concomitant]
     Active Substance: SPIRONOLACTONE
  20. NASONEX [Concomitant]
     Active Substance: MOMETASONE FUROATE
  21. PRAVASTATIN [Concomitant]
     Active Substance: PRAVASTATIN\PRAVASTATIN SODIUM
  22. TILIPIX [Concomitant]

REACTIONS (2)
  - Bronchitis [Unknown]
  - Barrett^s oesophagus [Unknown]
